FAERS Safety Report 8776352 (Version 2)
Quarter: 2012Q4

REPORT INFORMATION
  Report Type: Report from Study
  Country: US (occurrence: US)
  Receive Date: 20120910
  Receipt Date: 20121211
  Transmission Date: 20130627
  Serious: Yes (Hospitalization)
  Sender: FDA-Public Use
  Company Number: US-GLAXOSMITHKLINE-A0992462A

PATIENT
  Age: 85 Year
  Sex: Male
  Weight: 66.4 kg

DRUGS (11)
  1. OFATUMUMAB [Suspect]
     Indication: CHRONIC LYMPHOCYTIC LEUKAEMIA
  2. LENALIDOMIDE [Suspect]
     Indication: CHRONIC LYMPHOCYTIC LEUKAEMIA
     Dosage: 5MG Per day
     Route: 048
  3. LOVENOX [Concomitant]
  4. CENTRUM [Concomitant]
     Dosage: 1TAB Per day
     Route: 048
  5. UNKNOWN DRUG [Concomitant]
     Dosage: 2TSP Twice per day
     Route: 048
  6. SODIUM CHLORIDE [Concomitant]
     Route: 055
  7. HYTRIN [Concomitant]
     Dosage: 1TAB Per day
     Route: 048
  8. MOMETASONE [Concomitant]
     Dosage: 2PUFF At night
     Route: 055
  9. PRILOSEC [Concomitant]
     Dosage: 2TAB Twice per day
     Route: 048
  10. SPIRIVA [Concomitant]
     Dosage: 18PUFF Per day
     Route: 055
  11. XOPENEX [Concomitant]
     Route: 048

REACTIONS (5)
  - Dehydration [Recovered/Resolved]
  - Pyrexia [Recovered/Resolved]
  - Fatigue [Unknown]
  - Pneumococcal bacteraemia [Unknown]
  - Deep vein thrombosis [Unknown]
